FAERS Safety Report 6701950-3 (Version None)
Quarter: 2010Q2

REPORT INFORMATION
  Report Type: 
  Country: None (occurrence: None)
  Receive Date: 20100427
  Receipt Date: 20100416
  Transmission Date: 20101027
  Serious: Yes (Hospitalization)
  Sender: FDA-Public Use
  Company Number: 002770

PATIENT
  Sex: Female

DRUGS (11)
  1. CERTOLIZUMAB [Suspect]
     Indication: RHEUMATOID ARTHRITIS
     Dosage: 400 MG 1X/2 WEEKS, SUBCUTANEOUSL 200 MG 1X/2 WEEKS SUBCUTANEOUS
     Route: 058
     Dates: start: 20091006, end: 20091020
  2. CERTOLIZUMAB [Suspect]
     Indication: RHEUMATOID ARTHRITIS
     Dosage: 400 MG 1X/2 WEEKS, SUBCUTANEOUSL 200 MG 1X/2 WEEKS SUBCUTANEOUS
     Route: 058
     Dates: start: 20091103, end: 20091117
  3. ATENOLOL [Concomitant]
  4. CALCIUM [Concomitant]
  5. ENALAPRIL MALEATE [Concomitant]
  6. FOLIC ACID [Concomitant]
  7. HYDROCHOLORTHIAZIDE [Concomitant]
  8. METHOTREXATE SODIUM [Concomitant]
  9. OMEPRAZOLE [Concomitant]
  10. FELDENE [Concomitant]
  11. ACETAMINOPHEN [Concomitant]

REACTIONS (3)
  - CHRONIC OBSTRUCTIVE PULMONARY DISEASE [None]
  - SINUS TACHYCARDIA [None]
  - TRICUSPID VALVE INCOMPETENCE [None]
